FAERS Safety Report 19518481 (Version 1)
Quarter: 2021Q3

REPORT INFORMATION
  Report Type: Spontaneous
  Country: US (occurrence: US)
  Receive Date: 20210709
  Receipt Date: 20210709
  Transmission Date: 20211014
  Serious: No
  Sender: FDA-Public Use
  Company Number: None

PATIENT
  Age: 60 Year
  Sex: Female
  Weight: 48.6 kg

DRUGS (11)
  1. TYLENOL SINUS [Concomitant]
     Active Substance: ACETAMINOPHEN\DIPHENHYDRAMINE
  2. VITAMIN D [Concomitant]
     Active Substance: VITAMIN D NOS
  3. LISINOPRIL. [Concomitant]
     Active Substance: LISINOPRIL
  4. VITAMIN B12 [Concomitant]
     Active Substance: CYANOCOBALAMIN
  5. ZOLOFT [Concomitant]
     Active Substance: SERTRALINE HYDROCHLORIDE
  6. ZYRTEC [Concomitant]
     Active Substance: CETIRIZINE HYDROCHLORIDE
  7. CALCIUM [Concomitant]
     Active Substance: CALCIUM
  8. CIPROFLOXACIN HCL 500 MG [Suspect]
     Active Substance: CIPROFLOXACIN HYDROCHLORIDE
     Indication: URINARY TRACT INFECTION
     Dosage: ?          QUANTITY:1 CAPSULE(S);?
     Route: 048
     Dates: start: 20210420, end: 20210424
  9. COLLAGEN [Concomitant]
     Active Substance: COLLAGEN
  10. VITAMIN C [Concomitant]
     Active Substance: ASCORBIC ACID
  11. WOMENS EVERYDAY VITAMIN [Concomitant]

REACTIONS (1)
  - Pain in extremity [None]

NARRATIVE: CASE EVENT DATE: 20210420
